FAERS Safety Report 7820493-7 (Version None)
Quarter: 2011Q4

REPORT INFORMATION
  Report Type: 
  Country: None (occurrence: None)
  Receive Date: 20111018
  Receipt Date: 20111004
  Transmission Date: 20120403
  Serious: Yes (Other)
  Sender: FDA-Public Use
  Company Number: US-BAYER-2010-002135

PATIENT
  Age: 21 Year
  Sex: Female
  Weight: 77 kg

DRUGS (3)
  1. DROSPIRENONE AND ETHINYL ESTRADIOL [Suspect]
     Dosage: UNK
     Dates: start: 19990101, end: 20000101
  2. YAZ [Suspect]
     Indication: PRODUCT USED FOR UNKNOWN INDICATION
     Dosage: UNK
     Dates: start: 19990101, end: 20000101
  3. YASMIN [Suspect]
     Dosage: UNK
     Dates: start: 19990101, end: 20000101

REACTIONS (3)
  - CHOLECYSTITIS CHRONIC [None]
  - DEEP VEIN THROMBOSIS [None]
  - GALLBLADDER DISORDER [None]
